FAERS Safety Report 8977434 (Version 1)
Quarter: 2012Q4

REPORT INFORMATION
  Report Type: 
  Country: US (occurrence: US)
  Receive Date: 20121220
  Receipt Date: 20121220
  Transmission Date: 20130627
  Serious: No
  Sender: FDA-Public Use
  Company Number: US-TEVA-376938USA

PATIENT
  Age: 50 Year
  Sex: Female

DRUGS (4)
  1. FENTORA [Suspect]
     Indication: BREAKTHROUGH PAIN
     Dosage: QID/PRN
     Route: 002
  2. OXYCONTIN [Concomitant]
     Indication: CANCER PAIN
     Dosage: BID/TID takes 2-3 per day
     Route: 048
  3. ADVIL [Concomitant]
     Indication: PAIN
     Dosage: PRN
     Route: 048
  4. TYLENOL [Concomitant]
     Indication: PAIN
     Dosage: PRN
     Route: 048

REACTIONS (1)
  - Pain [Not Recovered/Not Resolved]
